FAERS Safety Report 22155807 (Version 1)
Quarter: 2023Q1

REPORT INFORMATION
  Report Type: Other
  Country: US (occurrence: None)
  Receive Date: 20230330
  Receipt Date: 20230330
  Transmission Date: 20230417
  Serious: Yes (Other)
  Sender: FDA-Public Use
  Company Number: US-ROCHE-3316274

PATIENT
  Age: 67 Year
  Sex: Male

DRUGS (15)
  1. PIRFENIDONE [Suspect]
     Active Substance: PIRFENIDONE
     Indication: Interstitial lung disease
     Route: 065
  2. MYCOPHENOLATE MOFETIL [Suspect]
     Active Substance: MYCOPHENOLATE MOFETIL
     Indication: Interstitial lung disease
     Route: 065
  3. PREDNISONE [Suspect]
     Active Substance: PREDNISONE
     Indication: Interstitial lung disease
     Route: 065
  4. REMDESIVIR [Concomitant]
     Active Substance: REMDESIVIR
  5. DEXAMETHASONE [Concomitant]
     Active Substance: DEXAMETHASONE
  6. ALBUTEROL [Concomitant]
     Active Substance: ALBUTEROL
  7. CALCIUM CARBONATE [Concomitant]
     Active Substance: CALCIUM CARBONATE
  8. CHOLECALCIFEROL [Concomitant]
     Active Substance: CHOLECALCIFEROL
  9. IPRATROPIUM [Concomitant]
     Active Substance: IPRATROPIUM
  10. ALBUTEROL [Concomitant]
     Active Substance: ALBUTEROL
  11. PANTOPRAZOLE [Concomitant]
     Active Substance: PANTOPRAZOLE
  12. SULFAMETHOXAZOLE\TRIMETHOPRIM [Concomitant]
     Active Substance: SULFAMETHOXAZOLE\TRIMETHOPRIM
  13. CEFEPIME [Concomitant]
     Active Substance: CEFEPIME HYDROCHLORIDE
  14. VANCOMYCIN [Concomitant]
     Active Substance: VANCOMYCIN
  15. DOXYCYCLINE [Concomitant]
     Active Substance: DOXYCYCLINE

REACTIONS (3)
  - Systemic inflammatory response syndrome [Unknown]
  - Dyspnoea [Not Recovered/Not Resolved]
  - Human anaplasmosis [Unknown]
